FAERS Safety Report 4929710-4 (Version None)
Quarter: 2006Q1

REPORT INFORMATION
  Report Type: 
  Country: None (occurrence: None)
  Receive Date: 20060224
  Receipt Date: 20060207
  Transmission Date: 20060701
  Serious: Yes (Life-Threatening)
  Sender: FDA-Public Use
  Company Number: 06H-163-0305760-00

PATIENT
  Sex: Female

DRUGS (1)
  1. HYDROMORPHONE HCL [Suspect]
     Dosage: 22 ML ONCE
     Dates: start: 20060207

REACTIONS (4)
  - APNOEA [None]
  - MEDICATION ERROR [None]
  - OVERDOSE [None]
  - RESPIRATORY DISTRESS [None]
